FAERS Safety Report 6500278-4 (Version None)
Quarter: 2009Q4

REPORT INFORMATION
  Report Type: 
  Country: None (occurrence: None)
  Receive Date: 20091216
  Receipt Date: 20091207
  Transmission Date: 20100525
  Serious: Yes (Other)
  Sender: FDA-Public Use
  Company Number: US-ROCHE-665294

PATIENT
  Sex: Male

DRUGS (3)
  1. ISOTRETINOIN [Suspect]
     Dosage: THE PATIENT DISPENSED WITH 20 MG ACCUTANE ON 22 AUG 09.
     Route: 048
     Dates: start: 20090722, end: 20090916
  2. ISOTRETINOIN [Suspect]
     Route: 048
     Dates: start: 20090917, end: 20090929
  3. AMNESTEEM [Suspect]
     Indication: DRUG USE FOR UNKNOWN INDICATION
     Dosage: THE PATIENT DISPENSED AMNESTEEM 20 MG CAPSULES ON 22JUL09 + 17SEP09.
     Route: 065

REACTIONS (2)
  - HALLUCINATION, AUDITORY [None]
  - SUICIDAL IDEATION [None]
